FAERS Safety Report 25649386 (Version 1)
Quarter: 2025Q3

REPORT INFORMATION
  Report Type: Spontaneous
  Country: PK (occurrence: PK)
  Receive Date: 20250806
  Receipt Date: 20250806
  Transmission Date: 20251021
  Serious: Yes (Hospitalization, Other)
  Sender: AMGEN
  Company Number: PK-AMGEN-PAKSP2025151063

PATIENT
  Age: 33 Year
  Sex: Female

DRUGS (5)
  1. FILGRASTIM [Suspect]
     Active Substance: FILGRASTIM
     Indication: Prophylaxis
     Dosage: 5 MICROGRAM/KILOGRAM, QD
     Route: 065
  2. VINCRISTINE [Concomitant]
     Active Substance: VINCRISTINE
     Dosage: 2 MILLIGRAM/SQ. METER, Q3WK
  3. CYCLOPHOSPHAMIDE [Concomitant]
     Active Substance: CYCLOPHOSPHAMIDE
     Dosage: 1200 MILLIGRAM/SQ. METER (ON DAY 1, ALTERNATING WITH IFOSFAMIDE)
  4. IFOSFAMIDE [Concomitant]
     Active Substance: IFOSFAMIDE
     Dosage: 1800 MILLIGRAM/SQ. METER ( FROM DAY I TO DAY FIVE)
  5. ETOPOSIDE [Concomitant]
     Active Substance: ETOPOSIDE
     Dosage: 100 MILLIGRAM/SQ. METER (FROM DAY I TO DAY 5,)

REACTIONS (4)
  - Gastrointestinal toxicity [Unknown]
  - Febrile neutropenia [Unknown]
  - Optic neuritis [Unknown]
  - Asthenia [Unknown]
